FAERS Safety Report 5430619-0 (Version None)
Quarter: 2007Q3

REPORT INFORMATION
  Report Type: 
  Country: None (occurrence: None)
  Receive Date: 20070830
  Receipt Date: 20070829
  Transmission Date: 20080115
  Serious: Yes (Death, Life-Threatening)
  Sender: FDA-Public Use
  Company Number: JP-BRISTOL-MYERS SQUIBB COMPANY-13716246

PATIENT
  Age: 5 Decade
  Sex: Male

DRUGS (5)
  1. ENDOXAN [Suspect]
  2. METHOTREXATE [Suspect]
  3. CYCLOSPORINE [Suspect]
  4. TACROLIMUS [Suspect]
  5. ANTIBIOTICS [Concomitant]

REACTIONS (2)
  - CARDIOMYOPATHY [None]
  - DEATH [None]
